FAERS Safety Report 9229876 (Version 1)
Quarter: 2013Q2

REPORT INFORMATION
  Report Type: Spontaneous
  Country: US (occurrence: None)
  Receive Date: 20130412
  Receipt Date: 20130412
  Transmission Date: 20140414
  Serious: Yes (Life-Threatening, Hospitalization)
  Sender: FDA-Public Use
  Company Number: None

PATIENT
  Age: 50 Year
  Sex: Female
  Weight: 56.7 kg

DRUGS (2)
  1. PAROXITINE [Suspect]
     Indication: DEPRESSION
     Route: 048
     Dates: start: 20120212, end: 20120518
  2. PAROXETINE [Concomitant]

REACTIONS (3)
  - Vomiting [None]
  - Mental disorder [None]
  - Post-traumatic stress disorder [None]
